FAERS Safety Report 24969861 (Version 1)
Quarter: 2025Q1

REPORT INFORMATION
  Report Type: Spontaneous
  Country: RU (occurrence: RU)
  Receive Date: 20250214
  Receipt Date: 20250214
  Transmission Date: 20250409
  Serious: Yes (Hospitalization)
  Sender: ROCHE
  Company Number: RU-ROCHE-10000198432

PATIENT
  Age: 41 Year

DRUGS (2)
  1. VEMURAFENIB [Suspect]
     Active Substance: VEMURAFENIB
     Indication: Product used for unknown indication
     Route: 065
     Dates: start: 202112
  2. COBIMETINIB [Suspect]
     Active Substance: COBIMETINIB
     Indication: Product used for unknown indication
     Route: 065
     Dates: start: 202112

REACTIONS (3)
  - Arteriovenous malformation [Unknown]
  - Cerebral haematoma [Unknown]
  - Meningeal disorder [Unknown]

NARRATIVE: CASE EVENT DATE: 20221001
